FAERS Safety Report 9028126 (Version 1)
Quarter: 2012Q4

REPORT INFORMATION
  Report Type: Spontaneous
  Country: BR (occurrence: None)
  Receive Date: 20120831
  Receipt Date: 20120831
  Transmission Date: 20130627
  Serious: Yes (Death, Hospitalization)
  Sender: FDA-Public Use
  Company Number: ENTC2012-0110

PATIENT
  Age: 86 Year
  Sex: Male

DRUGS (7)
  1. STALEVO (LEVODOPA,  CARBIDOPA,  ENTACAPONE) [Suspect]
     Indication: PARKINSON^S DISEASE
     Dosage: 50 /  12.5 / 200  mg; 1 tablet in morning,  1 tablet in afternoon and 
1 tablet at night
     Route: 048
  2. STALEVO (LEVODOPA,  CARBIDOPA,  ENTACAPONE) [Suspect]
     Indication: PARKINSON^S DISEASE
     Dosage: 100 / 25 / 200  mg,  one tablet thrice daily
     Route: 048
  3. STALEVO (LEVODOPA,  CARBIDOPA,  ENTACAPONE) [Suspect]
     Indication: PARKINSON^S DISEASE
     Dosage: 50 / 12.5 / 200  mg,  one tablet thrice daily
     Route: 048
  4. CAPTOPRIL [Concomitant]
  5. ASPIRINA [Concomitant]
  6. OMEPRAZOL [Concomitant]
  7. SIMVASTATIN [Concomitant]

REACTIONS (14)
  - Cardiac failure [None]
  - Mental impairment [None]
  - Bradykinesia [None]
  - Nervousness [None]
  - Agitation [None]
  - Restlessness [None]
  - Poor quality sleep [None]
  - Decreased appetite [None]
  - Cardiomegaly [None]
  - Pneumonia [None]
  - Lung infection [None]
  - Kidney infection [None]
  - Renal failure [None]
  - Weight decreased [None]
